FAERS Safety Report 5260240-9 (Version None)
Quarter: 2007Q1

REPORT INFORMATION
  Report Type: 
  Country: None (occurrence: None)
  Receive Date: 20070309
  Receipt Date: 20060519
  Transmission Date: 20070707
  Serious: No
  Sender: FDA-Public Use
  Company Number: US-GLAXOSMITHKLINE-A0606149A

PATIENT
  Age: 62 Year
  Sex: Male

DRUGS (4)
  1. NICORETTE (MINT) [Suspect]
     Dates: start: 20060119
  2. EQUATE NICOTINE GUM 2MG, MINT [Suspect]
     Dates: start: 20060119
  3. NICORETTE (MINT) [Suspect]
     Dates: start: 20060119
  4. NICORETTE (MINT) [Suspect]
     Dates: start: 20060119

REACTIONS (1)
  - INTENTIONAL DRUG MISUSE [None]
